FAERS Safety Report 4686772-X (Version None)
Quarter: 2005Q2

REPORT INFORMATION
  Report Type: 
  Country: None (occurrence: None)
  Receive Date: 20050608
  Receipt Date: 20050524
  Transmission Date: 20051028
  Serious: Yes (Hospitalization)
  Sender: FDA-Public Use
  Company Number: 2005-126333-NL

PATIENT
  Age: 33 Year
  Sex: Female

DRUGS (5)
  1. MENOTROPINS [Suspect]
     Indication: OVULATION INDUCTION
     Dosage: 150 IU INTRAMUSCULAR
     Route: 030
     Dates: start: 20040212, end: 20040212
  2. MENOTROPINS [Suspect]
     Indication: OVULATION INDUCTION
     Dosage: 150 IU INTRAMUSCULAR
     Route: 030
     Dates: start: 20040214, end: 20040214
  3. MENOTROPINS [Suspect]
     Indication: OVULATION INDUCTION
     Dosage: 150 IU INTRAMUSCULAR
     Route: 030
     Dates: start: 20040216, end: 20040218
  4. CLIMIFENE CITRATE [Suspect]
     Indication: OVULATION INDUCTION
     Dosage: 100 MG ORAL
     Route: 048
     Dates: start: 20040207, end: 20040211
  5. SODIUM PICOSULFATE [Concomitant]

REACTIONS (3)
  - ABORTION THREATENED [None]
  - ANAEMIA [None]
  - ECTOPIC PREGNANCY [None]
